FAERS Safety Report 8531899-5 (Version None)
Quarter: 2012Q3

REPORT INFORMATION
  Report Type: 
  Country: None (occurrence: None)
  Receive Date: 20120723
  Receipt Date: 20120719
  Transmission Date: 20120928
  Serious: Yes (Death, Hospitalization)
  Sender: FDA-Public Use
  Company Number: PHHY2012CH050651

PATIENT
  Age: 51 Year
  Sex: Female
  Weight: 56 kg

DRUGS (7)
  1. CALCIMAGON-D3 [Concomitant]
     Dosage: 1 DF, QD
     Route: 048
     Dates: start: 20120329, end: 20120520
  2. CLOZAPINE [Suspect]
     Indication: BIPOLAR DISORDER
     Dosage: 300 MG, QD
     Route: 048
     Dates: start: 20120201, end: 20120429
  3. SEROQUEL [Suspect]
     Dosage: 400 MG, QD
     Route: 048
     Dates: start: 20120201, end: 20120429
  4. LORAZEPAM [Concomitant]
     Dosage: 2 MG, QD
     Route: 048
     Dates: start: 20120412, end: 20120520
  5. LEVOTHYROXINE SODIUM [Concomitant]
     Dosage: 100 UG, QD
     Route: 048
     Dates: start: 20120229, end: 20120520
  6. LITHIUM CARBONATE [Concomitant]
     Dosage: 1.5 MG, QD
     Route: 048
     Dates: start: 20120229, end: 20120520
  7. EZETIMIBE [Concomitant]
     Dosage: 10 MG, QD
     Route: 048
     Dates: start: 20081218, end: 20120520

REACTIONS (12)
  - AGRANULOCYTOSIS [None]
  - RESPIRATORY FAILURE [None]
  - CONFUSIONAL STATE [None]
  - SUBCLAVIAN VEIN THROMBOSIS [None]
  - UROSEPSIS [None]
  - ESCHERICHIA TEST POSITIVE [None]
  - ACQUIRED TRACHEO-OESOPHAGEAL FISTULA [None]
  - LEUKOPENIA [None]
  - PYREXIA [None]
  - OESOPHAGITIS [None]
  - ASPIRATION [None]
  - HAEMORRHAGE [None]
